FAERS Safety Report 5362134-7 (Version None)
Quarter: 2007Q2

REPORT INFORMATION
  Report Type: 
  Country: None (occurrence: None)
  Receive Date: 20070618
  Receipt Date: 20070618
  Transmission Date: 20071010
  Serious: No
  Sender: FDA-Public Use
  Company Number: None

PATIENT

DRUGS (1)
  1. INTERFERON [Suspect]
     Dosage: INJECTABLE

REACTIONS (8)
  - BLOOD LACTATE DEHYDROGENASE INCREASED [None]
  - ELECTROLYTE IMBALANCE [None]
  - HYPERURICAEMIA [None]
  - MEDICATION ERROR [None]
  - PANCYTOPENIA [None]
  - PERFORMANCE STATUS DECREASED [None]
  - RENAL IMPAIRMENT [None]
  - TUMOUR LYSIS SYNDROME [None]
